FAERS Safety Report 25703706 (Version 2)
Quarter: 2025Q3

REPORT INFORMATION
  Report Type: Report from Study
  Country: US (occurrence: US)
  Receive Date: 20250820
  Receipt Date: 20250922
  Transmission Date: 20251020
  Serious: No
  Sender: SUNOVION
  Company Number: US-SMPA-2025SPA010385

PATIENT
  Age: 65 Year
  Sex: Male

DRUGS (14)
  1. ORGOVYX [Suspect]
     Active Substance: RELUGOLIX
     Indication: Prostate cancer
     Route: 048
     Dates: start: 20250707, end: 20250707
  2. ORGOVYX [Suspect]
     Active Substance: RELUGOLIX
     Route: 048
  3. ALPROSTADIL [Concomitant]
     Active Substance: ALPROSTADIL
  4. AMLODIPINE [Concomitant]
     Active Substance: AMLODIPINE BESYLATE
  5. ASPIRIN [Concomitant]
     Active Substance: ASPIRIN
  6. ATORVASTATIN [Concomitant]
     Active Substance: ATORVASTATIN
  7. CARVEDILOL [Concomitant]
     Active Substance: CARVEDILOL
  8. EZETIMIBE [Concomitant]
     Active Substance: EZETIMIBE
  9. HYDROCHLOROTHIAZIDE [Concomitant]
     Active Substance: HYDROCHLOROTHIAZIDE
  10. NITROGLYCERIN [Concomitant]
     Active Substance: NITROGLYCERIN
  11. OMEPRAZOLE [Concomitant]
     Active Substance: OMEPRAZOLE
  12. RANOLAZINE [Concomitant]
     Active Substance: RANOLAZINE
  13. VALSARTAN [Concomitant]
     Active Substance: VALSARTAN
  14. NITROSTAT [Concomitant]
     Active Substance: NITROGLYCERIN

REACTIONS (7)
  - Penile size reduced [Unknown]
  - Anger [Unknown]
  - Mood altered [Unknown]
  - Impatience [Unknown]
  - Irritability [Unknown]
  - Hot flush [Unknown]
  - Asthenia [Unknown]
